FAERS Safety Report 5015022-X (Version None)
Quarter: 2006Q2

REPORT INFORMATION
  Report Type: 
  Country: None (occurrence: None)
  Receive Date: 20060414
  Receipt Date: 20060110
  Transmission Date: 20061013
  Serious: No
  Sender: FDA-Public Use
  Company Number: 2006SP000163

PATIENT
  Age: 63 Year
  Sex: Female
  Weight: 72.5755 kg

DRUGS (6)
  1. LUNESTA [Suspect]
     Indication: INSOMNIA
     Dosage: 3 MG;PRN;ORAL
     Route: 048
     Dates: start: 20050101, end: 20060109
  2. MULTIVITAMIN [Concomitant]
  3. PANTOPRAZOLE [Concomitant]
  4. TIZANIDINE HCL [Concomitant]
  5. SUMATRIPTAN SUCCINATE [Concomitant]
  6. MELATONIN [Concomitant]

REACTIONS (1)
  - DYSGEUSIA [None]
